FAERS Safety Report 11820519 (Version 1)
Quarter: 2015Q4

REPORT INFORMATION
  Report Type: Spontaneous
  Country: US (occurrence: US)
  Receive Date: 20151210
  Receipt Date: 20151210
  Transmission Date: 20160305
  Serious: No
  Sender: FDA-Public Use
  Company Number: US-JNJFOC-20150706381

PATIENT
  Sex: Female

DRUGS (16)
  1. IMBRUVICA [Suspect]
     Active Substance: IBRUTINIB
     Indication: CHRONIC LYMPHOCYTIC LEUKAEMIA
     Route: 048
     Dates: start: 20140307
  2. NIACIN. [Concomitant]
     Active Substance: NIACIN
  3. CENTRUM SILVER [Concomitant]
     Active Substance: MINERALS\VITAMINS
  4. AMLODIPINE [Concomitant]
     Active Substance: AMLODIPINE BESYLATE
  5. BENICAR [Concomitant]
     Active Substance: OLMESARTAN MEDOXOMIL
  6. IBUPROFEN. [Concomitant]
     Active Substance: IBUPROFEN
  7. SIMVASTATIN. [Concomitant]
     Active Substance: SIMVASTATIN
  8. CARVEDILOL. [Concomitant]
     Active Substance: CARVEDILOL
  9. ASPIRIN. [Concomitant]
     Active Substance: ASPIRIN
  10. MECLIZINE [Concomitant]
     Active Substance: MECLIZINE\MECLIZINE HYDROCHLORIDE
  11. ACETAMINOPHEN. [Concomitant]
     Active Substance: ACETAMINOPHEN
  12. PRAMIPEXOLE. [Concomitant]
     Active Substance: PRAMIPEXOLE
  13. METFORMIN [Concomitant]
     Active Substance: METFORMIN HYDROCHLORIDE
  14. EYE DROPS [Concomitant]
     Active Substance: TETRAHYDROZOLINE HYDROCHLORIDE
  15. VITAMIN D [Concomitant]
     Active Substance: CHOLECALCIFEROL
  16. CIPRO [Concomitant]
     Active Substance: CIPROFLOXACIN HYDROCHLORIDE

REACTIONS (2)
  - Rash [Unknown]
  - Drug dose omission [Recovered/Resolved]
